FAERS Safety Report 4312786-5 (Version None)
Quarter: 2004Q1

REPORT INFORMATION
  Report Type: 
  Country: None (occurrence: None)
  Receive Date: 20040304
  Receipt Date: 20040224
  Transmission Date: 20041129
  Serious: No
  Sender: FDA-Public Use
  Company Number: 2004199405GB

PATIENT
  Age: 25 Year
  Sex: Female
  Weight: 62 kg

DRUGS (2)
  1. DEPO-PROVERA [Suspect]
     Indication: CONTRACEPTION
     Dosage: 150MG/CYCLIC, FIRST INJECTION, INTRAMUSCULAR
     Route: 030
     Dates: start: 19970812, end: 19970812
  2. DEPO-PROVERA [Suspect]
     Indication: CONTRACEPTION
     Dosage: 150MG, LAST INJECTION, INTRAMUSCULAR
     Route: 030
     Dates: start: 20021014, end: 20021014

REACTIONS (1)
  - HYPERSENSITIVITY [None]
